FAERS Safety Report 26040815 (Version 1)
Quarter: 2025Q4

REPORT INFORMATION
  Report Type: Report from Study
  Country: US (occurrence: US)
  Receive Date: 20251113
  Receipt Date: 20251113
  Transmission Date: 20260118
  Serious: Yes (Other)
  Sender: PFIZER
  Company Number: US-PFIZER INC-202500220616

PATIENT
  Age: 41 Year
  Sex: Female

DRUGS (1)
  1. VELSIPITY [Suspect]
     Active Substance: ETRASIMOD ARGININE
     Indication: Colitis ulcerative
     Dosage: 2 MG, DAILY
     Dates: start: 20250820

REACTIONS (4)
  - Pancreatitis [Unknown]
  - Escherichia infection [Recovered/Resolved]
  - Lipase increased [Unknown]
  - Condition aggravated [Recovering/Resolving]
